FAERS Safety Report 20820092 (Version 1)
Quarter: 2022Q2

REPORT INFORMATION
  Report Type: Report from Study
  Country: MX (occurrence: MX)
  Receive Date: 20220512
  Receipt Date: 20220512
  Transmission Date: 20220721
  Serious: Yes (Other)
  Sender: FDA-Public Use
  Company Number: MX-NOVARTISPH-NVSC2022MX108124

PATIENT
  Sex: Female
  Weight: 63 kg

DRUGS (2)
  1. HYDROCHLOROTHIAZIDE\VALSARTAN [Suspect]
     Active Substance: HYDROCHLOROTHIAZIDE\VALSARTAN
     Indication: Tachycardia
     Dosage: 1 DOSAGE FORM, QD, BY MOUTH
     Route: 048
     Dates: start: 202102
  2. HYDROCHLOROTHIAZIDE\VALSARTAN [Suspect]
     Active Substance: HYDROCHLOROTHIAZIDE\VALSARTAN
     Indication: Cardiac disorder

REACTIONS (2)
  - Choroidal effusion [Recovered/Resolved]
  - Product use in unapproved indication [Unknown]
